FAERS Safety Report 9402922 (Version 2)
Quarter: 2013Q3

REPORT INFORMATION
  Report Type: Report from Study
  Country: VE (occurrence: VE)
  Receive Date: 20130716
  Receipt Date: 20130722
  Transmission Date: 20140515
  Serious: Yes (Hospitalization)
  Sender: FDA-Public Use
  Company Number: PHHY2013VE074497

PATIENT
  Age: 61 Year
  Sex: Male

DRUGS (4)
  1. LEPONEX [Suspect]
     Indication: SCHIZOPHRENIA
     Dosage: 300 MG DAILY
     Route: 048
  2. LEPONEX [Suspect]
     Dosage: 100 MG, QID
  3. VALCOTE [Concomitant]
     Indication: AFFECTIVE DISORDER
     Dosage: UNK
  4. ALPRAM [Concomitant]
     Indication: ANXIETY
     Dosage: UNK

REACTIONS (1)
  - Psychotic disorder [Recovered/Resolved]
